FAERS Safety Report 14213279 (Version 1)
Quarter: 2017Q4

REPORT INFORMATION
  Report Type: Spontaneous
  Country: US (occurrence: US)
  Receive Date: 20171122
  Receipt Date: 20171122
  Transmission Date: 20180321
  Serious: Yes (Other)
  Sender: FDA-Public Use
  Company Number: None

PATIENT
  Age: 66 Year
  Sex: Male
  Weight: 78.75 kg

DRUGS (7)
  1. LOSARTAN POTASSIUM 100 MG [Suspect]
     Active Substance: LOSARTAN POTASSIUM
     Indication: HYPERTENSION
     Dosage: ?          QUANTITY:1 TABLET(S);?
     Route: 048
     Dates: start: 20170930, end: 20171012
  2. NATURE-THROID [Concomitant]
     Active Substance: THYROID, PORCINE
  3. VITAMIN B12 [Concomitant]
     Active Substance: CYANOCOBALAMIN
  4. OMEGA OILS [Concomitant]
  5. MAGNESIUM [Concomitant]
     Active Substance: MAGNESIUM
  6. VITAMIN D [Concomitant]
     Active Substance: CHOLECALCIFEROL
  7. IODINE. [Concomitant]
     Active Substance: IODINE

REACTIONS (2)
  - Hypertension [None]
  - Migraine [None]

NARRATIVE: CASE EVENT DATE: 20171011
